FAERS Safety Report 4752330-1 (Version None)
Quarter: 2005Q3

REPORT INFORMATION
  Report Type: 
  Country: None (occurrence: None)
  Receive Date: 20050825
  Receipt Date: 20050610
  Transmission Date: 20060218
  Serious: Yes (Hospitalization)
  Sender: FDA-Public Use
  Company Number: FR-GLAXOSMITHKLINE-B0384662A

PATIENT
  Age: 26 Year
  Sex: Male
  Weight: 73 kg

DRUGS (5)
  1. ONDANSETRON [Suspect]
     Indication: NAUSEA
     Dosage: 8MG PER DAY
     Route: 048
     Dates: start: 20050301, end: 20050605
  2. CAPASTAT [Suspect]
     Indication: PULMONARY TUBERCULOSIS
     Dosage: 1G WEEKLY
     Route: 030
     Dates: start: 20050218
  3. PARA-AMINOSALICYLIC [Suspect]
     Indication: PULMONARY TUBERCULOSIS
     Dosage: 10G PER DAY
     Route: 048
     Dates: start: 20050218
  4. DEXAMBUTOL [Suspect]
     Indication: PULMONARY TUBERCULOSIS
     Dosage: 1.5G PER DAY
     Route: 048
     Dates: start: 20050218
  5. ZYVOXID [Suspect]
     Indication: PULMONARY TUBERCULOSIS
     Route: 048
     Dates: start: 20050218

REACTIONS (6)
  - ANORECTAL DISORDER [None]
  - ATRIOVENTRICULAR BLOCK [None]
  - ATRIOVENTRICULAR BLOCK SECOND DEGREE [None]
  - LOSS OF CONSCIOUSNESS [None]
  - SINUS ARRHYTHMIA [None]
  - VERTIGO [None]
